FAERS Safety Report 10012198 (Version 2)
Quarter: 2014Q2

REPORT INFORMATION
  Report Type: Spontaneous
  Country: GB (occurrence: GB)
  Receive Date: 20140314
  Receipt Date: 20140402
  Transmission Date: 20141212
  Serious: Yes (Other)
  Sender: FDA-Public Use
  Company Number: GB-GLAXOSMITHKLINE-B0976914A

PATIENT
  Age: 19 Year
  Sex: Female

DRUGS (2)
  1. CIMETIDINE [Suspect]
     Indication: HYPERCHLORHYDRIA
     Route: 065
     Dates: start: 20131122
  2. ORAL CONTRACEPTIVE PILL [Suspect]
     Indication: PRODUCT USED FOR UNKNOWN INDICATION
     Route: 048

REACTIONS (3)
  - Unintended pregnancy [Not Recovered/Not Resolved]
  - Drug interaction [Not Recovered/Not Resolved]
  - Exposure during pregnancy [Unknown]
